FAERS Safety Report 10522872 (Version 2)
Quarter: 2014Q4

REPORT INFORMATION
  Report Type: Spontaneous
  Country: US (occurrence: US)
  Receive Date: 20141016
  Receipt Date: 20141016
  Transmission Date: 20150528
  Serious: Yes (Hospitalization, Other)
  Sender: FDA-Public Use
  Company Number: US-GLAXOSMITHKLINE-A0870852A

PATIENT
  Age: 56 Year
  Sex: Female

DRUGS (1)
  1. AVANDIA [Suspect]
     Active Substance: ROSIGLITAZONE MALEATE
     Indication: DIABETES MELLITUS
     Dosage: UNK, UNK
     Route: 048
     Dates: start: 20030103, end: 20070324

REACTIONS (9)
  - Pneumothorax [Unknown]
  - Atrial fibrillation [Unknown]
  - Cardiac arrest [Unknown]
  - Renal failure [Unknown]
  - Chronic obstructive pulmonary disease [Unknown]
  - Myocardial infarction [Not Recovered/Not Resolved]
  - Pleural effusion [Unknown]
  - Pulmonary oedema [Unknown]
  - Cardiac failure [Unknown]

NARRATIVE: CASE EVENT DATE: 20040602
